FAERS Safety Report 21669480 (Version 1)
Quarter: 2022Q4

REPORT INFORMATION
  Report Type: Spontaneous
  Country: US (occurrence: US)
  Receive Date: 20221201
  Receipt Date: 20221201
  Transmission Date: 20230113
  Serious: Yes (Other)
  Sender: FDA-Public Use
  Company Number: US-BAYER-2022A163097

PATIENT

DRUGS (1)
  1. AFRIN ORIGINAL NASAL [Suspect]
     Active Substance: OXYMETAZOLINE HYDROCHLORIDE
     Indication: Nasal congestion
     Dosage: UNK
     Route: 045

REACTIONS (5)
  - Drug dependence [Unknown]
  - Rebound nasal congestion [Unknown]
  - Nasal obstruction [Unknown]
  - Nasal disorder [Unknown]
  - Nasal inflammation [Unknown]
